FAERS Safety Report 9898343 (Version 4)
Quarter: 2014Q2

REPORT INFORMATION
  Report Type: Spontaneous
  Country: US (occurrence: US)
  Receive Date: 20140214
  Receipt Date: 20140404
  Transmission Date: 20141212
  Serious: No
  Sender: FDA-Public Use
  Company Number: US-PFIZER INC-2014040353

PATIENT
  Sex: Female

DRUGS (1)
  1. AMLODIPINE BESILATE [Suspect]
     Dosage: 5 MG, UNK
     Dates: start: 2011, end: 20131009

REACTIONS (3)
  - Diarrhoea [Recovered/Resolved]
  - Weight decreased [Unknown]
  - Gastric disorder [Recovered/Resolved]
